FAERS Safety Report 7024452 (Version 2)
Quarter: 2019Q2

REPORT INFORMATION
  Report Type: Spontaneous
  Country: FR (occurrence: FR)
  Receive Date: 20090616
  Receipt Date: 20190403
  Transmission Date: 20190711
  Serious: Yes (Hospitalization, Other)
  Sender: FDA-Public Use
  Company Number: FR-ASTRAZENECA-2009CG01178

PATIENT
  Age: 27325 Day
  Sex: Male

DRUGS (12)
  1. COUMADINE [Interacting]
     Active Substance: WARFARIN SODIUM
     Indication: THROMBOSIS PROPHYLAXIS
     Dosage: ACCORDING TO INR
     Route: 048
     Dates: start: 2008, end: 20090518
  2. CORDARONE [Interacting]
     Active Substance: AMIODARONE HYDROCHLORIDE
     Indication: ATRIAL FIBRILLATION
     Route: 048
     Dates: start: 2008
  3. DETENSIEL [Concomitant]
     Active Substance: BISOPROLOL FUMARATE
  4. GLUCOR [Concomitant]
     Active Substance: ACARBOSE
     Route: 048
  5. COVERSYL [Concomitant]
     Active Substance: PERINDOPRIL
  6. SUTENT [Interacting]
     Active Substance: SUNITINIB MALATE
     Indication: RENAL CANCER
     Dosage: 50 MG, 1X/DAY, 4 WEEKS OUT OF 6
     Route: 048
     Dates: start: 20090429
  7. CRESTOR [Suspect]
     Active Substance: ROSUVASTATIN CALCIUM
     Indication: HYPERCHOLESTEROLAEMIA
     Route: 048
     Dates: end: 20090519
  8. KARDEGIC [Interacting]
     Active Substance: ASPIRIN DL-LYSINE
     Indication: THROMBOSIS PROPHYLAXIS
     Route: 048
  9. DAONIL [Concomitant]
     Active Substance: GLYBURIDE
     Dates: end: 200905
  10. EZETROL [Concomitant]
     Active Substance: EZETIMIBE
     Dates: end: 200905
  11. COUMADINE [Interacting]
     Active Substance: WARFARIN SODIUM
     Indication: THROMBOSIS PROPHYLAXIS
     Dosage: ACCORDING TO INR
     Route: 048
     Dates: start: 20090520, end: 20090524
  12. TRIFLUCAN [Interacting]
     Active Substance: FLUCONAZOLE
     Indication: CUTANEOUS T-CELL LYMPHOMA
     Route: 048
     Dates: start: 20090429

REACTIONS (3)
  - Drug interaction [Recovered/Resolved]
  - Gingival bleeding [Recovered/Resolved]
  - Haemoptysis [Recovered/Resolved]

NARRATIVE: CASE EVENT DATE: 20090519
